FAERS Safety Report 6527994-2 (Version None)
Quarter: 2010Q1

REPORT INFORMATION
  Report Type: 
  Country: None (occurrence: None)
  Receive Date: 20100105
  Receipt Date: 20100105
  Transmission Date: 20100710
  Serious: Yes (Other)
  Sender: FDA-Public Use
  Company Number: None

PATIENT
  Age: 7 Year
  Sex: Female
  Weight: 27.2158 kg

DRUGS (2)
  1. SINGULAIR [Suspect]
     Indication: MYCOTIC ALLERGY
     Dosage: 5MG DAILY PO
     Route: 048
     Dates: start: 20090301, end: 20090530
  2. SINGULAIR [Suspect]
     Indication: MYCOTIC ALLERGY
     Dosage: 5MG DAILY PO
     Route: 048
     Dates: start: 20090915, end: 20091130

REACTIONS (5)
  - ANXIETY [None]
  - CRYING [None]
  - MORBID THOUGHTS [None]
  - OBSESSIVE THOUGHTS [None]
  - PERSONALITY CHANGE [None]
